FAERS Safety Report 17690209 (Version 1)
Quarter: 2020Q2

REPORT INFORMATION
  Report Type: Report from Study
  Country: US (occurrence: US)
  Receive Date: 20200421
  Receipt Date: 20200421
  Transmission Date: 20200714
  Serious: Yes (Other)
  Sender: FDA-Public Use
  Company Number: PHHO2016US009016

PATIENT
  Age: 46 Year
  Sex: Male
  Weight: 123 kg

DRUGS (7)
  1. LCI699 [Suspect]
     Active Substance: OSILODROSTAT
     Indication: PITUITARY-DEPENDENT CUSHING^S SYNDROME
     Dosage: 1 MG, BID
     Route: 048
     Dates: start: 20150819
  2. LCI699 [Suspect]
     Active Substance: OSILODROSTAT
     Dosage: 2 MG, BID
     Route: 048
     Dates: start: 20150825
  3. NO TREATMENT RECEIVED [Suspect]
     Active Substance: UNSPECIFIED INGREDIENT
     Indication: PITUITARY-DEPENDENT CUSHING^S SYNDROME
     Dosage: NO TREATMENT
     Route: 065
  4. LCI699 [Suspect]
     Active Substance: OSILODROSTAT
     Dosage: 2 MG, BID
     Route: 048
     Dates: start: 20150917
  5. LCI699 [Suspect]
     Active Substance: OSILODROSTAT
     Dosage: 5 MG, QD
     Route: 048
     Dates: start: 20160610, end: 20160613
  6. LCI699 [Suspect]
     Active Substance: OSILODROSTAT
     Dosage: 3 MG, BID
     Route: 048
     Dates: start: 20150922
  7. LCI699 [Suspect]
     Active Substance: OSILODROSTAT
     Dosage: 5 MG, BID
     Route: 048
     Dates: start: 20160409

REACTIONS (2)
  - Blood corticotrophin increased [Not Recovered/Not Resolved]
  - Pituitary tumour [Recovering/Resolving]

NARRATIVE: CASE EVENT DATE: 20160414
